FAERS Safety Report 9969758 (Version 1)
Quarter: 2014Q1

REPORT INFORMATION
  Report Type: Spontaneous
  Country: US (occurrence: US)
  Receive Date: 20140306
  Receipt Date: 20140306
  Transmission Date: 20141002
  Serious: No
  Sender: FDA-Public Use
  Company Number: US-009507513-1402USA011386

PATIENT
  Sex: Female

DRUGS (2)
  1. PEGINTRON [Suspect]
     Indication: HEPATITIS C
     Dosage: VIAL
     Dates: start: 200402
  2. REBETOL [Suspect]
     Route: 048

REACTIONS (1)
  - Hepatic function abnormal [Recovered/Resolved]
